FAERS Safety Report 18212605 (Version 1)
Quarter: 2020Q3

REPORT INFORMATION
  Report Type: Spontaneous
  Country: JP (occurrence: JP)
  Receive Date: 20200831
  Receipt Date: 20200831
  Transmission Date: 20201103
  Serious: Yes (Other)
  Sender: FDA-Public Use
  Company Number: JP-BAYER-2020-179654

PATIENT
  Age: 77 Year
  Sex: Male

DRUGS (1)
  1. XOFIGO [Suspect]
     Active Substance: RADIUM RA-223 DICHLORIDE
     Indication: HORMONE-REFRACTORY PROSTATE CANCER
     Dosage: UNK UNK, Q1MON
     Dates: start: 20200527, end: 20200819

REACTIONS (2)
  - Hormone-refractory prostate cancer [None]
  - Metastases to bone [None]

NARRATIVE: CASE EVENT DATE: 20200819
